FAERS Safety Report 23859764 (Version 1)
Quarter: 2024Q2

REPORT INFORMATION
  Report Type: Spontaneous
  Country: IT (occurrence: IT)
  Receive Date: 20240515
  Receipt Date: 20240515
  Transmission Date: 20240716
  Serious: Yes (Other)
  Sender: FDA-Public Use
  Company Number: IT-ROCHE-2836647

PATIENT
  Age: 70 Year
  Sex: Male

DRUGS (3)
  1. BENDAMUSTINE HYDROCHLORIDE [Suspect]
     Active Substance: BENDAMUSTINE HYDROCHLORIDE
     Indication: Mantle cell lymphoma
     Dosage: UNK, R-BAC REGIMEN
     Route: 065
  2. RITUXIMAB [Suspect]
     Active Substance: RITUXIMAB
     Indication: Mantle cell lymphoma
     Dosage: UNK, R-BAC REGIMEN
     Route: 065
  3. CYTARABINE [Suspect]
     Active Substance: CYTARABINE
     Indication: Mantle cell lymphoma
     Dosage: UNK, R-BAC REGIMEN
     Route: 065

REACTIONS (7)
  - COVID-19 pneumonia [Unknown]
  - Post-acute COVID-19 syndrome [Unknown]
  - COVID-19 [Unknown]
  - Respiratory failure [Unknown]
  - Viraemia [Unknown]
  - Off label use [Unknown]
  - Intentional product use issue [Unknown]
